FAERS Safety Report 8913546 (Version 2)
Quarter: 2012Q4

REPORT INFORMATION
  Report Type: 
  Country: DE (occurrence: DE)
  Receive Date: 20121119
  Receipt Date: 20121206
  Transmission Date: 20130627
  Serious: Yes (Hospitalization)
  Sender: FDA-Public Use
  Company Number: DE-JNJFOC-20121103129

PATIENT
  Age: 30 Year
  Sex: Male

DRUGS (4)
  1. HALDOL DECANOATE [Suspect]
     Indication: PRODUCT USED FOR UNKNOWN INDICATION
     Route: 030
     Dates: start: 200805, end: 20081117
  2. ZYPREXA [Suspect]
     Indication: PRODUCT USED FOR UNKNOWN INDICATION
     Route: 048
     Dates: start: 200805, end: 20080903
  3. BIFITERAL [Concomitant]
     Indication: PRODUCT USED FOR UNKNOWN INDICATION
     Route: 048
     Dates: start: 20080803, end: 20080925
  4. AKINETON [Concomitant]
     Indication: PRODUCT USED FOR UNKNOWN INDICATION
     Route: 048
     Dates: start: 200805, end: 20081023

REACTIONS (3)
  - Diabetes mellitus [Recovered/Resolved]
  - Metabolic syndrome [Recovered/Resolved]
  - Weight increased [Recovered/Resolved]
